FAERS Safety Report 15717826 (Version 1)
Quarter: 2018Q4

REPORT INFORMATION
  Report Type: Spontaneous
  Country: US (occurrence: US)
  Receive Date: 20181212
  Receipt Date: 20181212
  Transmission Date: 20190205
  Serious: No
  Sender: FDA-Public Use
  Company Number: None

PATIENT
  Age: 55 Year
  Sex: Female
  Weight: 69.5 kg

DRUGS (2)
  1. SMARTSITE LOW SORBING INFUSION SET [Suspect]
     Active Substance: DEVICE
  2. NORMAL SALINE, 0.9 % [Suspect]
     Active Substance: SODIUM CHLORIDE

REACTIONS (5)
  - Underdose [None]
  - Exposure via skin contact [None]
  - Accidental exposure to product [None]
  - Skin burning sensation [None]
  - Device issue [None]
